FAERS Safety Report 8478155-1 (Version None)
Quarter: 2012Q2

REPORT INFORMATION
  Report Type: 
  Country: None (occurrence: None)
  Receive Date: 20120629
  Receipt Date: 20120625
  Transmission Date: 20120825
  Serious: Yes (Hospitalization)
  Sender: FDA-Public Use
  Company Number: PHHY2012FR055451

PATIENT
  Sex: Male

DRUGS (1)
  1. TEGRETOL [Suspect]
     Indication: AFFECTIVE DISORDER

REACTIONS (3)
  - PHOTODERMATOSIS [None]
  - SYSTEMIC LUPUS ERYTHEMATOSUS [None]
  - ERYSIPELAS [None]
